FAERS Safety Report 15255015 (Version 1)
Quarter: 2018Q3

REPORT INFORMATION
  Report Type: Report from Study
  Country: None (occurrence: FR)
  Receive Date: 20180808
  Receipt Date: 20180808
  Transmission Date: 20181010
  Serious: Yes (Death)
  Sender: FDA-Public Use
  Company Number: FR-ABBVIE-18K-056-2353697-00

PATIENT
  Age: 82 Year
  Sex: Female

DRUGS (1)
  1. DUODOPA [Suspect]
     Active Substance: CARBIDOPA\LEVODOPA
     Indication: PARKINSON^S DISEASE
     Route: 050
     Dates: start: 20150401

REACTIONS (7)
  - Fatigue [Unknown]
  - Death [Fatal]
  - Device leakage [Unknown]
  - Incorrect route of drug administration [Unknown]
  - Device occlusion [Unknown]
  - Fall [Not Recovered/Not Resolved]
  - Hypophagia [Unknown]

NARRATIVE: CASE EVENT DATE: 20180504
